FAERS Safety Report 8600452-7 (Version None)
Quarter: 2012Q3

REPORT INFORMATION
  Report Type: 
  Country: None (occurrence: None)
  Receive Date: 20120802
  Receipt Date: 20120723
  Transmission Date: 20120928
  Serious: Yes (Other)
  Sender: FDA-Public Use
  Company Number: 2012P1051720

PATIENT
  Sex: Male

DRUGS (1)
  1. PROPYLTHIOURACIL [Suspect]
     Indication: HYPERTHYROIDISM
     Dosage: 100 MG; BID

REACTIONS (5)
  - THYROID DISORDER [None]
  - BLOOD THYROID STIMULATING HORMONE INCREASED [None]
  - REFUSAL OF TREATMENT BY RELATIVE [None]
  - APLASIA [None]
  - MATERNAL DRUGS AFFECTING FOETUS [None]
